FAERS Safety Report 26200403 (Version 2)
Quarter: 2025Q4

REPORT INFORMATION
  Report Type: Spontaneous
  Country: US (occurrence: US)
  Receive Date: 20251225
  Receipt Date: 20251230
  Transmission Date: 20260118
  Serious: Yes (Hospitalization)
  Sender: BEIGENE
  Company Number: US-BEONEMEDICINES-BGN-2025-022921

PATIENT
  Age: 79 Year
  Sex: Male

DRUGS (2)
  1. BRUKINSA [Suspect]
     Active Substance: ZANUBRUTINIB
     Indication: Chronic lymphocytic leukaemia
     Dosage: UNK
  2. BRUKINSA [Suspect]
     Active Substance: ZANUBRUTINIB
     Indication: Chronic lymphocytic leukaemia
     Dosage: 160 MILLIGRAM
     Route: 061

REACTIONS (5)
  - Peripheral swelling [Unknown]
  - Erythema [Recovering/Resolving]
  - Joint swelling [Not Recovered/Not Resolved]
  - Cellulitis [Unknown]
  - Rash [Not Recovered/Not Resolved]
